FAERS Safety Report 10397466 (Version 2)
Quarter: 2014Q4

REPORT INFORMATION
  Report Type: Spontaneous
  Country: US (occurrence: US)
  Receive Date: 20140820
  Receipt Date: 20141020
  Transmission Date: 20150528
  Serious: Yes (Hospitalization, Other)
  Sender: FDA-Public Use
  Company Number: US-BAXTER-2014BAX048097

PATIENT
  Sex: Female

DRUGS (6)
  1. PREDNISONE. [Concomitant]
     Active Substance: PREDNISONE
     Indication: PREMEDICATION
     Route: 048
     Dates: start: 201406, end: 201407
  2. PEDIALYTE [Concomitant]
     Indication: PRODUCT USED FOR UNKNOWN INDICATION
  3. PEDIALYTE [Concomitant]
     Indication: PREMEDICATION
     Route: 065
  4. BENADRYL [Concomitant]
     Active Substance: DIPHENHYDRAMINE HYDROCHLORIDE
     Indication: PREMEDICATION
     Route: 048
     Dates: start: 201406, end: 201407
  5. GAMMAGARD LIQUID [Suspect]
     Active Substance: HUMAN IMMUNOGLOBULIN G
     Route: 042
     Dates: start: 201407, end: 201407
  6. GAMMAGARD LIQUID [Suspect]
     Active Substance: HUMAN IMMUNOGLOBULIN G
     Indication: IMMUNODEFICIENCY COMMON VARIABLE
     Route: 042
     Dates: start: 201406, end: 201406

REACTIONS (7)
  - Neuropathy peripheral [Not Recovered/Not Resolved]
  - Abasia [Not Recovered/Not Resolved]
  - Malaise [Not Recovered/Not Resolved]
  - Bacterial infection [Unknown]
  - Disease complication [Not Recovered/Not Resolved]
  - Therapeutic response decreased [Unknown]
  - Pain [Not Recovered/Not Resolved]
